FAERS Safety Report 7524590-5 (Version None)
Quarter: 2011Q2

REPORT INFORMATION
  Report Type: 
  Country: None (occurrence: None)
  Receive Date: 20110606
  Receipt Date: 20110524
  Transmission Date: 20111010
  Serious: Yes (Death, Hospitalization, Other)
  Sender: FDA-Public Use
  Company Number: CA-ELI_LILLY_AND_COMPANY-CA201101002198

PATIENT
  Age: 79 Year
  Sex: Female

DRUGS (16)
  1. RAMIPRIL [Concomitant]
  2. CALCIUM CARBONATE [Concomitant]
  3. SYNTHROID [Concomitant]
  4. BISOPROLOL FUMARATE [Concomitant]
  5. LIPITOR [Concomitant]
  6. D-TABS [Concomitant]
  7. NEXIUM [Concomitant]
  8. PLAVIX [Concomitant]
  9. ATASOL /00020001/ [Concomitant]
  10. FORTEO [Suspect]
     Dosage: 20 UG, QD
     Route: 058
     Dates: end: 20110201
  11. COLACE [Concomitant]
  12. FORTEO [Suspect]
     Indication: OSTEOPOROSIS
     Dosage: 20 UG, DAILY (1/D)
     Route: 058
     Dates: start: 20090717
  13. ASPIRIN [Concomitant]
  14. PLAQUENIL [Concomitant]
  15. METAMUCIL-2 [Concomitant]
  16. COUMADIN [Concomitant]

REACTIONS (4)
  - DEATH [None]
  - ACUTE MYOCARDIAL INFARCTION [None]
  - CHEST PAIN [None]
  - STENT PLACEMENT [None]
